FAERS Safety Report 7338499-3 (Version None)
Quarter: 2011Q1

REPORT INFORMATION
  Report Type: 
  Country: None (occurrence: None)
  Receive Date: 20110308
  Receipt Date: 20110227
  Transmission Date: 20110831
  Serious: Yes (Death, Hospitalization)
  Sender: FDA-Public Use
  Company Number: EG-SANOFI-AVENTIS-2011SA012559

PATIENT
  Age: 59 Year
  Sex: Female

DRUGS (1)
  1. INSULIN GLARGINE [Suspect]
     Route: 058
     Dates: start: 20100912

REACTIONS (1)
  - DIABETIC HYPERGLYCAEMIC COMA [None]
